FAERS Safety Report 8574576-7 (Version None)
Quarter: 2012Q3

REPORT INFORMATION
  Report Type: 
  Country: None (occurrence: None)
  Receive Date: 20120806
  Receipt Date: 20120724
  Transmission Date: 20120928
  Serious: Yes (Hospitalization)
  Sender: FDA-Public Use
  Company Number: US-MYLANLABS-2012S1015228

PATIENT
  Age: 31 Year
  Sex: Male

DRUGS (4)
  1. DULOXETIME HYDROCHLORIDE [Concomitant]
     Dosage: 60MG DAILY
     Route: 065
  2. RISPERIDONE [Concomitant]
     Dosage: DAILY
     Route: 065
  3. TRAMADOL HCL [Suspect]
     Dosage: 50MG AS NEEDED
     Route: 048
  4. TRAMADOL HCL [Suspect]
     Indication: SUICIDE ATTEMPT
     Dosage: DF = 50MG
     Route: 048

REACTIONS (8)
  - TACHYCARDIA [None]
  - TONIC CONVULSION [None]
  - SUICIDE ATTEMPT [None]
  - CONFUSIONAL STATE [None]
  - TOXICITY TO VARIOUS AGENTS [None]
  - POSTICTAL STATE [None]
  - OVERDOSE [None]
  - DRUG SCREEN FALSE POSITIVE [None]
